FAERS Safety Report 23479847 (Version 2)
Quarter: 2025Q1

REPORT INFORMATION
  Report Type: Spontaneous
  Country: US (occurrence: US)
  Receive Date: 20240205
  Receipt Date: 20250227
  Transmission Date: 20250409
  Serious: No
  Sender: UCB
  Company Number: US-UCBSA-2023037677

PATIENT
  Sex: Female

DRUGS (8)
  1. KEPPRA [Suspect]
     Active Substance: LEVETIRACETAM
     Indication: Product used for unknown indication
  2. AROMASIN [Suspect]
     Active Substance: EXEMESTANE
     Indication: Product used for unknown indication
  3. EXEMESTANE [Suspect]
     Active Substance: EXEMESTANE
     Indication: Breast cancer
     Route: 048
  4. EXEMESTANE [Suspect]
     Active Substance: EXEMESTANE
     Dates: start: 201906
  5. EXEMESTANE [Suspect]
     Active Substance: EXEMESTANE
     Dates: end: 202210
  6. IBRANCE [Suspect]
     Active Substance: PALBOCICLIB
     Indication: Arthralgia
     Dosage: 100 MILLIGRAM, EVERY 21 DAYS. 7 DAYS OFF, THEN REPEAT, 28-DAY SUPPLY
     Route: 048
     Dates: start: 202008
  7. IBRANCE [Suspect]
     Active Substance: PALBOCICLIB
     Indication: Musculoskeletal stiffness
     Dates: end: 202210
  8. IBRANCE [Suspect]
     Active Substance: PALBOCICLIB
     Indication: Breast cancer

REACTIONS (1)
  - Drug hypersensitivity [Unknown]

NARRATIVE: CASE EVENT DATE: 20221208
